FAERS Safety Report 9921161 (Version 3)
Quarter: 2014Q1

REPORT INFORMATION
  Report Type: Report from Study
  Country: US (occurrence: US)
  Receive Date: 20140225
  Receipt Date: 20140321
  Transmission Date: 20141002
  Serious: Yes (Hospitalization)
  Sender: FDA-Public Use
  Company Number: US-JNJFOC-20140213425

PATIENT
  Age: 18 Year
  Sex: Female
  Weight: 59.7 kg

DRUGS (1)
  1. REMICADE [Suspect]
     Indication: INFLAMMATORY BOWEL DISEASE
     Route: 042
     Dates: start: 20110518

REACTIONS (2)
  - Intestinal obstruction [Recovered/Resolved]
  - Dehydration [Recovered/Resolved]
